FAERS Safety Report 7490075-8 (Version None)
Quarter: 2011Q2

REPORT INFORMATION
  Report Type: 
  Country: None (occurrence: None)
  Receive Date: 20110517
  Receipt Date: 20110517
  Transmission Date: 20111010
  Serious: Yes (Hospitalization)
  Sender: FDA-Public Use
  Company Number: None

PATIENT
  Age: 81 Year
  Sex: Male
  Weight: 83.9 kg

DRUGS (1)
  1. CLOPIDOGREL [Suspect]
     Indication: ANTIPLATELET THERAPY
     Dosage: 75 MG EVERY DAY PO
     Route: 048
     Dates: start: 20100810, end: 20110421

REACTIONS (1)
  - SUBDURAL HAEMATOMA [None]
